FAERS Safety Report 9238708 (Version 1)
Quarter: 2013Q1

REPORT INFORMATION
  Report Type: Spontaneous
  Country: US (occurrence: None)
  Receive Date: 20121101
  Receipt Date: 20121101
  Transmission Date: 20140127
  Serious: No
  Sender: FDA-Public Use
  Company Number: 2012MZ000364

PATIENT
  Age: 53 Year
  Sex: Male
  Weight: 63.5 kg

DRUGS (2)
  1. XEOMIN [Suspect]
     Indication: TORTICOLLIS
     Dates: start: 201109, end: 201109
  2. KLONOPIN [Concomitant]

REACTIONS (1)
  - Drug ineffective [None]
